FAERS Safety Report 10799887 (Version 1)
Quarter: 2015Q1

REPORT INFORMATION
  Report Type: Spontaneous
  Country: US (occurrence: US)
  Receive Date: 20150216
  Receipt Date: 20150216
  Transmission Date: 20150721
  Serious: No
  Sender: FDA-Public Use
  Company Number: US-ALLERGAN-1417684US

PATIENT
  Age: 61 Year
  Sex: Female

DRUGS (4)
  1. RESTASIS [Suspect]
     Active Substance: CYCLOSPORINE
     Indication: DRY EYE
     Dosage: 2 GTT, BID
     Route: 047
     Dates: start: 2010
  2. PAMELOR [Concomitant]
     Active Substance: NORTRIPTYLINE HYDROCHLORIDE
     Dosage: 10 MG, FOUR TIMES A WEEK
  3. CRESTOR [Concomitant]
     Active Substance: ROSUVASTATIN CALCIUM
  4. ESTROGEN NOS [Concomitant]
     Active Substance: ESTROGENS

REACTIONS (6)
  - Rhinorrhoea [Unknown]
  - Adverse event [Unknown]
  - Rash [Unknown]
  - Urticaria [Unknown]
  - Dermatitis contact [Unknown]
  - Eye irritation [Unknown]

NARRATIVE: CASE EVENT DATE: 20140804
